FAERS Safety Report 6634149-X (Version None)
Quarter: 2010Q1

REPORT INFORMATION
  Report Type: 
  Country: None (occurrence: None)
  Receive Date: 20100315
  Receipt Date: 20100211
  Transmission Date: 20100710
  Serious: No
  Sender: FDA-Public Use
  Company Number: US-BAYER-201011969BCC

PATIENT
  Sex: Female

DRUGS (2)
  1. DESONATE [Suspect]
     Indication: EYELID DISORDER
     Route: 061
  2. TOBRADEX [Concomitant]
     Indication: EYELID DISORDER
     Route: 065

REACTIONS (1)
  - HEPATIC ENZYME INCREASED [None]
